APPROVED DRUG PRODUCT: CLORPRES
Active Ingredient: CHLORTHALIDONE; CLONIDINE HYDROCHLORIDE
Strength: 15MG;0.1MG
Dosage Form/Route: TABLET;ORAL
Application: A071325 | Product #003
Applicant: NATCO PHARMA LTD
Approved: Feb 9, 1987 | RLD: No | RS: No | Type: DISCN